FAERS Safety Report 13737213 (Version 1)
Quarter: 2017Q3

REPORT INFORMATION
  Report Type: Spontaneous
  Country: US (occurrence: US)
  Receive Date: 20170710
  Receipt Date: 20170710
  Transmission Date: 20171127
  Serious: Yes (Other)
  Sender: FDA-Public Use
  Company Number: US-SAOL THERAPEUTICS-2016SAO00153

PATIENT
  Age: 47 Year
  Sex: Male

DRUGS (17)
  1. SEROQUEL [Suspect]
     Active Substance: QUETIAPINE FUMARATE
  2. LEVAQUIN [Suspect]
     Active Substance: LEVOFLOXACIN
  3. BUSPAR [Concomitant]
     Active Substance: BUSPIRONE HYDROCHLORIDE
  4. LIDODERM [Suspect]
     Active Substance: LIDOCAINE
     Route: 061
  5. COMPOUNDED BACLOFEN [Suspect]
     Active Substance: BACLOFEN
     Dosage: 24.998 ?G/ML, UNK
  6. DILAUDID [Suspect]
     Active Substance: HYDROMORPHONE HYDROCHLORIDE
     Dosage: 14.006 MG, \DAY
     Route: 037
  7. BACLOFEN. [Concomitant]
     Active Substance: BACLOFEN
  8. NEXIUM [Suspect]
     Active Substance: ESOMEPRAZOLE MAGNESIUM
  9. OXYCODONE [Suspect]
     Active Substance: OXYCODONE
  10. NAPROXEN. [Suspect]
     Active Substance: NAPROXEN
  11. ATIVAN [Suspect]
     Active Substance: LORAZEPAM
  12. ZOCOR [Suspect]
     Active Substance: SIMVASTATIN
  13. DILAUDID [Suspect]
     Active Substance: HYDROMORPHONE HYDROCHLORIDE
     Dosage: 9.999 MG, \DAY
  14. COMPOUNDED BACLOFEN [Suspect]
     Active Substance: BACLOFEN
     Indication: PAIN
     Dosage: 35.015 ?G, \DAY
     Route: 037
  15. EFFEXOR XR [Suspect]
     Active Substance: VENLAFAXINE HYDROCHLORIDE
  16. TESSALON [Suspect]
     Active Substance: BENZONATATE
  17. LASIX [Suspect]
     Active Substance: FUROSEMIDE

REACTIONS (2)
  - Device kink [Recovered/Resolved]
  - Pain [Recovered/Resolved]

NARRATIVE: CASE EVENT DATE: 20160330
